FAERS Safety Report 16135924 (Version 3)
Quarter: 2019Q3

REPORT INFORMATION
  Report Type: Report from Study
  Country: US (occurrence: US)
  Receive Date: 20190329
  Receipt Date: 20190709
  Transmission Date: 20191004
  Serious: Yes (Life-Threatening, Hospitalization, Disabling, Other)
  Sender: FDA-Public Use
  Company Number: PHEH2019US012742

PATIENT
  Age: 75 Year
  Sex: Female
  Weight: 83 kg

DRUGS (4)
  1. LISINOPRIL. [Suspect]
     Active Substance: LISINOPRIL
     Indication: HYPERTENSION
     Dosage: 15 MG, DAILY
     Route: 048
     Dates: start: 20190210
  2. MECLIZINE [Suspect]
     Active Substance: MECLIZINE HYDROCHLORIDE
     Indication: MOTION SICKNESS
     Dosage: 12.5 MG DAILY
     Route: 048
     Dates: start: 20160805
  3. CALCIUM [Suspect]
     Active Substance: CALCIUM
     Indication: BONE DISORDER
     Dosage: DAILY
     Route: 048
  4. SANDOSTATIN LAR DEPOT [Suspect]
     Active Substance: OCTREOTIDE ACETATE
     Indication: NEUROENDOCRINE TUMOUR
     Dosage: 30 MG, QMO
     Route: 030
     Dates: start: 20110418

REACTIONS (4)
  - Motor dysfunction [Unknown]
  - Haemorrhagic stroke [Recovered/Resolved with Sequelae]
  - Muscular weakness [Unknown]
  - Cerebrovascular accident [Unknown]

NARRATIVE: CASE EVENT DATE: 20190209
